FAERS Safety Report 8022267-3 (Version None)
Quarter: 2011Q4

REPORT INFORMATION
  Report Type: 
  Country: None (occurrence: None)
  Receive Date: 20111123
  Receipt Date: 20111103
  Transmission Date: 20120403
  Serious: No
  Sender: FDA-Public Use
  Company Number: 335379

PATIENT
  Sex: Female

DRUGS (1)
  1. VICTOZA [Suspect]
     Indication: PRODUCT USED FOR UNKNOWN INDICATION
     Dosage: 0.6 MG, QD, SUBCUTANEOUS 1.2 MG, QD, SUBCUTANEOUS 1.8 MG, QD
     Route: 058

REACTIONS (3)
  - ERUCTATION [None]
  - NAUSEA [None]
  - VOMITING [None]
